FAERS Safety Report 12076400 (Version 1)
Quarter: 2016Q1

REPORT INFORMATION
  Report Type: Report from Study
  Country: US (occurrence: US)
  Receive Date: 20160215
  Receipt Date: 20160215
  Transmission Date: 20160526
  Serious: No
  Sender: FDA-Public Use
  Company Number: US-AMGEN-USASL2016015788

PATIENT
  Sex: Female

DRUGS (1)
  1. ENBREL [Suspect]
     Active Substance: ETANERCEPT
     Indication: POLYARTHRITIS
     Dosage: UNK
     Route: 065

REACTIONS (11)
  - Nausea [Unknown]
  - Nightmare [Unknown]
  - Fatigue [Unknown]
  - Throat irritation [Unknown]
  - Cough [Unknown]
  - Feeling abnormal [Unknown]
  - Depression [Unknown]
  - Pain [Unknown]
  - Contusion [Unknown]
  - Off label use [Unknown]
  - Insomnia [Unknown]
